FAERS Safety Report 17740382 (Version 4)
Quarter: 2020Q3

REPORT INFORMATION
  Report Type: Spontaneous
  Country: US (occurrence: US)
  Receive Date: 20200504
  Receipt Date: 20200824
  Transmission Date: 20201102
  Serious: Yes (Hospitalization)
  Sender: FDA-Public Use
  Company Number: US-JNJFOC-20200427508

PATIENT
  Age: 69 Year
  Sex: Female

DRUGS (8)
  1. NEUTROGENA RAPID WRINKLE REPAIR REGENERATING CREAM FRAGRANCE FREE [Suspect]
     Active Substance: COSMETICS
     Indication: PRODUCT USED FOR UNKNOWN INDICATION
     Route: 061
     Dates: start: 202004, end: 202004
  2. NEUTROGENA RAPID TONE REPAIR DARK SPOT CORRECTOR [Suspect]
     Active Substance: COSMETICS
     Indication: PRODUCT USED FOR UNKNOWN INDICATION
     Route: 061
     Dates: start: 202004, end: 202004
  3. NEUTROGENA PORE REFINING  CLEANSER [Suspect]
     Active Substance: COSMETICS
     Indication: PRODUCT USED FOR UNKNOWN INDICATION
     Route: 061
     Dates: start: 202004, end: 202004
  4. NEUTROGENA RAPID TONE REPAIR MOISTURIZER NIGHT [Suspect]
     Active Substance: COSMETICS
     Indication: PRODUCT USED FOR UNKNOWN INDICATION
     Route: 061
     Dates: start: 202004, end: 202004
  5. NEUTROGENA RAPID WRINKLE REPAIR EYE CREAM [Suspect]
     Active Substance: COSMETICS
     Indication: PRODUCT USED FOR UNKNOWN INDICATION
     Route: 061
     Dates: start: 202004, end: 202004
  6. NEUTROGENA RAPID WRINKLE REPAIR SERUM [Suspect]
     Active Substance: COSMETICS
     Indication: PRODUCT USED FOR UNKNOWN INDICATION
     Route: 061
     Dates: start: 202004, end: 202004
  7. NEUTROGENA RAPID WRINKLE REPAIR RETINOL OIL [Suspect]
     Active Substance: COSMETICS
     Indication: PRODUCT USED FOR UNKNOWN INDICATION
     Route: 061
     Dates: start: 202004, end: 202004
  8. NEUTROGENA RAPID TONE REPAIR MOISTURIZER SUNSCREEN BROAD SPECTRUM SPF30 [Suspect]
     Active Substance: AVOBENZONE\HOMOSALATE\OCTISALATE\OCTOCRYLENE
     Indication: PRODUCT USED FOR UNKNOWN INDICATION
     Route: 061
     Dates: start: 202004, end: 202004

REACTIONS (4)
  - Application site erosion [Recovered/Resolved]
  - Application site swelling [Recovered/Resolved]
  - Application site irritation [Recovered/Resolved]
  - Application site pain [Recovered/Resolved]

NARRATIVE: CASE EVENT DATE: 20200413
